FAERS Safety Report 6758620-5 (Version None)
Quarter: 2010Q2

REPORT INFORMATION
  Report Type: 
  Country: None (occurrence: None)
  Receive Date: 20100607
  Receipt Date: 20100527
  Transmission Date: 20101027
  Serious: Yes (Hospitalization)
  Sender: FDA-Public Use
  Company Number: US-ASTRAZENECA-2010SE24584

PATIENT
  Sex: Female
  Weight: 54.4 kg

DRUGS (6)
  1. CRESTOR [Suspect]
     Indication: HYPERCHOLESTEROLAEMIA
     Route: 048
     Dates: start: 20100301
  2. CELEXA [Concomitant]
     Indication: DEPRESSION
  3. MULIPLE VITAMINS [Concomitant]
  4. METOPROLOL TARTRATE [Concomitant]
     Indication: HYPERTENSION
  5. LISINOPRIL [Concomitant]
  6. OS-CAL [Concomitant]

REACTIONS (4)
  - AORTIC DISSECTION [None]
  - ASTHENIA [None]
  - FALL [None]
  - HIP FRACTURE [None]
